FAERS Safety Report 4705903-6 (Version None)
Quarter: 2005Q2

REPORT INFORMATION
  Report Type: 
  Country: None (occurrence: None)
  Receive Date: 20050629
  Receipt Date: 20050622
  Transmission Date: 20051028
  Serious: Yes (Hospitalization)
  Sender: FDA-Public Use
  Company Number: 2005092179

PATIENT
  Sex: Female

DRUGS (2)
  1. ZELDOX (CAPSULES)  (ZIPRASIDONE) [Suspect]
     Indication: SCHIZOPHRENIA
     Dosage: 80 MG (40 MG, 2 IN 1 D), ORAL
     Route: 048
  2. CLONAZEPAM [Suspect]
     Indication: ILL-DEFINED DISORDER
     Dosage: ORAL
     Route: 048

REACTIONS (1)
  - SUICIDE ATTEMPT [None]
